FAERS Safety Report 12173103 (Version 1)
Quarter: 2016Q1

REPORT INFORMATION
  Report Type: Report from Study
  Country: HU (occurrence: HU)
  Receive Date: 20160311
  Receipt Date: 20160311
  Transmission Date: 20160526
  Serious: Yes (Hospitalization)
  Sender: FDA-Public Use
  Company Number: HU-ABBVIE-16P-076-1575907-00

PATIENT
  Age: 1 Year
  Sex: Female

DRUGS (1)
  1. SYNAGIS [Suspect]
     Active Substance: PALIVIZUMAB
     Indication: RESPIRATORY SYNCYTIAL VIRUS INFECTION
     Dosage: BODY WEIGHT
     Route: 030
     Dates: start: 20160122

REACTIONS (2)
  - Pneumonia [Recovered/Resolved]
  - Cystic fibrosis [Unknown]

NARRATIVE: CASE EVENT DATE: 201602
